FAERS Safety Report 21542466 (Version 4)
Quarter: 2023Q1

REPORT INFORMATION
  Report Type: Report from Study
  Country: US (occurrence: US)
  Receive Date: 20221102
  Receipt Date: 20230303
  Transmission Date: 20230417
  Serious: Yes (Other)
  Sender: FDA-Public Use
  Company Number: US-UCBSA-2022062971

PATIENT
  Age: 3 Year
  Sex: Male
  Weight: 14.2 kg

DRUGS (17)
  1. FINTEPLA [Suspect]
     Active Substance: FENFLURAMINE
     Indication: Severe myoclonic epilepsy of infancy
     Dosage: 0.25 ML AM, 0.5 ML PM, 2X/DAY (BID)
     Dates: start: 202102
  2. FINTEPLA [Suspect]
     Active Substance: FENFLURAMINE
     Dosage: 0.5 MILLILITER, 2X/DAY (BID)
     Dates: end: 20220517
  3. FINTEPLA [Suspect]
     Active Substance: FENFLURAMINE
     Dosage: 2.2 MILLIGRAM, 2X/DAY (BID)
  4. FINTEPLA [Suspect]
     Active Substance: FENFLURAMINE
     Dosage: 2.64 MILLIGRAM, 2X/DAY (BID)
     Route: 048
     Dates: start: 20211001, end: 202203
  5. FINTEPLA [Suspect]
     Active Substance: FENFLURAMINE
     Dosage: 5.28 MILLIGRAM, ONCE DAILY (QD)
     Dates: start: 20211001, end: 20211005
  6. FINTEPLA [Suspect]
     Active Substance: FENFLURAMINE
     Dosage: 6 MILLIGRAM, ONCE DAILY (QD)
     Dates: start: 20211005, end: 20211010
  7. FINTEPLA [Suspect]
     Active Substance: FENFLURAMINE
     Dosage: 4 MILLIGRAM, ONCE DAILY (QD)
     Dates: start: 20211010, end: 20221003
  8. FINTEPLA [Suspect]
     Active Substance: FENFLURAMINE
     Dosage: 1.65 MILLIGRAM, ONCE DAILY (QD)
     Dates: start: 20221003, end: 20221003
  9. FINTEPLA [Suspect]
     Active Substance: FENFLURAMINE
     Dosage: UNK
  10. EPINEXT [Concomitant]
     Indication: Epilepsy
     Dosage: 1.25 MILLILITER, 2X/DAY (BID)
     Route: 048
     Dates: start: 201911
  11. EPINEXT [Concomitant]
     Indication: Severe myoclonic epilepsy of infancy
  12. OXCARBAZEPINE [Concomitant]
     Active Substance: OXCARBAZEPINE
     Indication: Epilepsy
     Dosage: 300 MILLIGRAM, 2X/DAY (BID)
     Route: 048
  13. OXCARBAZEPINE [Concomitant]
     Active Substance: OXCARBAZEPINE
     Indication: Severe myoclonic epilepsy of infancy
  14. PHENOBARBITAL [Concomitant]
     Active Substance: PHENOBARBITAL
     Indication: Product used for unknown indication
     Dosage: 16.2 MILLIGRAM 1 AM AND 1.5 PM
     Route: 048
     Dates: start: 20190204, end: 202109
  15. FERROUS SULFATE [Concomitant]
     Active Substance: FERROUS SULFATE
     Indication: Ketogenic diet
     Dosage: 1 MILLILITER, 2X/DAY (BID)
     Dates: start: 202011
  16. CANNABIDIOL [Concomitant]
     Active Substance: CANNABIDIOL
     Indication: Product used for unknown indication
     Dosage: 1.25 MILLIGRAM, 2X/DAY (BID)
     Dates: start: 201911
  17. L CARNITINE [LEVOCARNITINE] [Concomitant]
     Indication: Ketogenic diet
     Dosage: 330 MILLIGRAM, 2X/DAY (BID)
     Dates: start: 202011

REACTIONS (3)
  - Aortic dilatation [Recovered/Resolved]
  - Mitral valve incompetence [Not Recovered/Not Resolved]
  - Product use issue [Unknown]

NARRATIVE: CASE EVENT DATE: 20220927
